FAERS Safety Report 4806834-3 (Version None)
Quarter: 2005Q4

REPORT INFORMATION
  Report Type: 
  Country: None (occurrence: None)
  Receive Date: 20051024
  Receipt Date: 20051014
  Transmission Date: 20060501
  Serious: Yes (Hospitalization)
  Sender: FDA-Public Use
  Company Number: US-BOEHRINGER INGELHEIM PHARMACEUTICALS, INC.-2005-BP-14240BP

PATIENT
  Sex: Male
  Weight: 62.14 kg

DRUGS (26)
  1. COMBIVENT [Suspect]
     Indication: ASTHMA
     Route: 055
     Dates: start: 20020101
  2. STRATTERA [Concomitant]
     Indication: ATTENTION DEFICIT/HYPERACTIVITY DISORDER
     Dates: start: 20040801
  3. ULTRAM [Concomitant]
     Indication: OSTEOARTHRITIS
     Dates: start: 20040224
  4. ULTRAM [Concomitant]
     Indication: PULMONARY EMBOLISM
     Dates: start: 20041214, end: 20041215
  5. NUTRAFLEX [Concomitant]
     Indication: MEDICAL DIET
     Dates: start: 20040301
  6. RHINOCORT [Concomitant]
     Indication: HYPERSENSITIVITY
     Route: 045
     Dates: start: 20020101
  7. ALLERGY INJECTIONS [Concomitant]
     Indication: HYPERSENSITIVITY
     Dates: start: 20020101
  8. ANDROGEL [Concomitant]
     Indication: HORMONE REPLACEMENT THERAPY
     Dates: start: 20030801
  9. FLOMAX [Concomitant]
     Indication: BENIGN PROSTATIC HYPERPLASIA
     Dates: start: 20020101
  10. PREDNISONE [Concomitant]
     Indication: OSTEOARTHRITIS
     Dates: start: 20040901
  11. SYNTHROID [Concomitant]
     Indication: HYPOTHYROIDISM
     Dates: start: 20050401
  12. PROTONIX [Concomitant]
     Indication: GASTROOESOPHAGEAL REFLUX DISEASE
     Dates: start: 20040801
  13. AVALIDE [Concomitant]
     Indication: PULMONARY HYPERTENSION
     Dates: start: 20050701
  14. FUROSEMIDE [Concomitant]
     Indication: PULMONARY HYPERTENSION
     Dates: start: 20050701
  15. MUCINEX [Concomitant]
     Indication: ASTHMA
     Dates: start: 20050201
  16. METOPROLOL [Concomitant]
     Indication: PULMONARY HYPERTENSION
     Dates: start: 20050701
  17. AMBIEN [Concomitant]
     Indication: FIBROMYALGIA
     Dates: start: 20040901, end: 20050501
  18. SYNTHROID [Concomitant]
     Dates: start: 19980101, end: 20050101
  19. ASTELIN [Concomitant]
     Indication: HYPERSENSITIVITY
     Dates: start: 20020101
  20. ORAL KELATION [Concomitant]
     Indication: MEDICAL DIET
     Dates: start: 20030101, end: 20050501
  21. CHLORETTA [Concomitant]
     Indication: MEDICAL DIET
     Dates: start: 20040801, end: 20050201
  22. CELEBREX [Concomitant]
     Indication: OSTEOARTHRITIS
     Dates: start: 20040901, end: 20041001
  23. LOVENOX [Concomitant]
     Indication: PULMONARY EMBOLISM
     Dates: start: 20041214, end: 20041215
  24. COUMADIN [Concomitant]
     Indication: PULMONARY EMBOLISM
     Dates: start: 20041214, end: 20041215
  25. ZETIA [Concomitant]
     Indication: HYPERCHOLESTEROLAEMIA
     Dates: start: 20041214, end: 20041215
  26. VICODIN [Concomitant]
     Indication: PULMONARY EMBOLISM
     Dates: start: 20041214, end: 20041215

REACTIONS (9)
  - CHEST PAIN [None]
  - CORONARY ARTERY DISEASE [None]
  - DIZZINESS [None]
  - HYPERHIDROSIS [None]
  - KNEE ARTHROPLASTY [None]
  - MITRAL VALVE INCOMPETENCE [None]
  - OSTEOARTHRITIS [None]
  - PULMONARY EMBOLISM [None]
  - VENTRICULAR HYPERTROPHY [None]
